FAERS Safety Report 8950802 (Version 2)
Quarter: 2013Q1

REPORT INFORMATION
  Report Type: Spontaneous
  Country: BE (occurrence: BE)
  Receive Date: 20121207
  Receipt Date: 20130114
  Transmission Date: 20140127
  Serious: Yes (Hospitalization, Other)
  Sender: FDA-Public Use
  Company Number: BE-AMGEN-BELSP2012013408

PATIENT
  Age: 48 Year
  Sex: Female

DRUGS (5)
  1. NPLATE [Suspect]
     Indication: IDIOPATHIC THROMBOCYTOPENIC PURPURA
     Dosage: 300 MUG, UNK
     Dates: start: 20110329
  2. NPLATE [Suspect]
     Dosage: 200 MUG, UNK
     Dates: start: 20110329
  3. FOLIC ACID [Concomitant]
     Dosage: UNK
  4. OMEPRAZOL [Concomitant]
     Dosage: UNK
  5. VITAMIN B12 [Concomitant]
     Dosage: UNK UNK, Q6WK
     Route: 030

REACTIONS (14)
  - Cerebrovascular accident [Unknown]
  - Gastric haemorrhage [Unknown]
  - Renal artery stenosis [Unknown]
  - Pleural effusion [Unknown]
  - Incorrect dose administered [Unknown]
  - Platelet count decreased [Unknown]
  - Local swelling [Unknown]
  - Back pain [Unknown]
  - Haematoma [Unknown]
  - Hepatic steatosis [Unknown]
  - Arteriosclerosis [Unknown]
  - Infarction [Unknown]
  - Diverticulitis [Unknown]
  - Thrombocytosis [Unknown]
